FAERS Safety Report 20336803 (Version 2)
Quarter: 2025Q2

REPORT INFORMATION
  Report Type: Spontaneous
  Country: CA (occurrence: CA)
  Receive Date: 20220114
  Receipt Date: 20250417
  Transmission Date: 20250717
  Serious: Yes (Other)
  Sender: CIPHER
  Company Number: CA-CIPHER-2021-CA-002119

PATIENT
  Age: 66 Year
  Sex: Male

DRUGS (18)
  1. TRAMADOL HYDROCHLORIDE [Suspect]
     Active Substance: TRAMADOL HYDROCHLORIDE
     Indication: Rheumatoid arthritis
     Route: 065
  2. MANNITOL [Concomitant]
     Active Substance: MANNITOL
  3. METHOTREXATE [Concomitant]
     Active Substance: METHOTREXATE
  4. METHYLPREDNISOLONE [Concomitant]
     Active Substance: METHYLPREDNISOLONE
  5. ROSUVASTATIN [Concomitant]
     Active Substance: ROSUVASTATIN
  6. TYLENOL [Concomitant]
     Active Substance: ACETAMINOPHEN
  7. VITAMIN D3 [Concomitant]
     Active Substance: CHOLECALCIFEROL
  8. ZOLEDRONIC ACID [Concomitant]
     Active Substance: ZOLEDRONIC ACID
  9. CIPROFLOXACIN [Suspect]
     Active Substance: CIPROFLOXACIN
     Indication: Dysuria
  10. HYDROXYCHLOROQUINE [Concomitant]
     Active Substance: HYDROXYCHLOROQUINE
     Indication: Product used for unknown indication
  11. ACTEMRA [Suspect]
     Active Substance: TOCILIZUMAB
     Indication: Rheumatoid arthritis
     Route: 042
  12. RITUXIMAB [Suspect]
     Active Substance: RITUXIMAB
     Indication: Rheumatoid arthritis
     Route: 042
  13. LEFLUNOMIDE [Suspect]
     Active Substance: LEFLUNOMIDE
     Indication: Product used for unknown indication
     Route: 065
  14. ACETAMINOPHEN [Concomitant]
     Active Substance: ACETAMINOPHEN
  15. CALCIUM [Concomitant]
     Active Substance: CALCIUM
  16. DIPHENHYDRAMINE HYDROCHLORIDE [Concomitant]
     Active Substance: DIPHENHYDRAMINE HYDROCHLORIDE
  17. FOLIC ACID [Concomitant]
     Active Substance: FOLIC ACID
  18. INNOHEP [Concomitant]
     Active Substance: TINZAPARIN SODIUM

REACTIONS (19)
  - Insomnia [Unknown]
  - Hyperhidrosis [Unknown]
  - Headache [Unknown]
  - Gastrointestinal disorder [Unknown]
  - Cough [Unknown]
  - Asthenia [Unknown]
  - Anxiety [Unknown]
  - Arthritis [Unknown]
  - Diarrhoea [Unknown]
  - Abdominal discomfort [Unknown]
  - Abdominal pain upper [Unknown]
  - Dysuria [Unknown]
  - Drug ineffective [Unknown]
  - Feeling hot [Unknown]
  - Heart rate decreased [Unknown]
  - Malaise [Unknown]
  - Pain [Unknown]
  - Venous thrombosis [Unknown]
  - Paraesthesia oral [Unknown]
